FAERS Safety Report 23839584 (Version 1)
Quarter: 2024Q2

REPORT INFORMATION
  Report Type: Spontaneous
  Country: US (occurrence: None)
  Receive Date: 20240510
  Receipt Date: 20240510
  Transmission Date: 20240716
  Serious: No
  Sender: FDA-Public Use
  Company Number: US-ROCHE-3560589

PATIENT
  Sex: Female
  Weight: 56.75 kg

DRUGS (1)
  1. OCREVUS [Suspect]
     Active Substance: OCRELIZUMAB
     Indication: Relapsing-remitting multiple sclerosis
     Dosage: LAST DOSE ON 02/MAY/2024
     Route: 042
     Dates: start: 20240418

REACTIONS (2)
  - Rash vesicular [Not Recovered/Not Resolved]
  - Varicella [Unknown]

NARRATIVE: CASE EVENT DATE: 20240505
